FAERS Safety Report 10570372 (Version 1)
Quarter: 2014Q4

REPORT INFORMATION
  Report Type: Report from Study
  Country: US (occurrence: US)
  Receive Date: 20141107
  Receipt Date: 20141107
  Transmission Date: 20150529
  Serious: Yes (Life-Threatening, Other)
  Sender: FDA-Public Use
  Company Number: US-JNJFOC-20141103466

PATIENT
  Sex: Female
  Weight: 81.65 kg

DRUGS (3)
  1. REMICADE [Suspect]
     Active Substance: INFLIXIMAB
     Indication: RHEUMATOID ARTHRITIS
     Dosage: DRUG STARTED IN 2003 OR 2004 AND HAD BEEN ON IT FOR 3-4 YEARS
     Route: 042
  2. PLAQUENIL [Concomitant]
     Active Substance: HYDROXYCHLOROQUINE SULFATE
     Indication: BLOOD CHOLESTEROL INCREASED
     Route: 065
  3. ALEVE [Concomitant]
     Active Substance: NAPROXEN SODIUM
     Indication: ARTHRITIS
     Route: 065

REACTIONS (5)
  - Arthritis [Recovered/Resolved]
  - Cerebrovascular accident [Recovered/Resolved]
  - Muscle spasms [Recovered/Resolved]
  - Drug hypersensitivity [Recovered/Resolved]
  - Body height decreased [Not Recovered/Not Resolved]
